FAERS Safety Report 9647883 (Version 1)
Quarter: 2013Q4

REPORT INFORMATION
  Report Type: Spontaneous
  Country: US (occurrence: None)
  Receive Date: 20131024
  Receipt Date: 20131024
  Transmission Date: 20140711
  Serious: Yes (Life-Threatening, Disabling)
  Sender: FDA-Public Use
  Company Number: None

PATIENT
  Age: 63 Year
  Sex: Female
  Weight: 104.33 kg

DRUGS (1)
  1. VICTOZA [Suspect]
     Indication: DIABETES MELLITUS INADEQUATE CONTROL
     Dosage: .6 MG ONCE DAILY INTO THE MUSCLE
     Route: 030
     Dates: start: 20130717, end: 20130722

REACTIONS (17)
  - Decreased appetite [None]
  - Ageusia [None]
  - Headache [None]
  - Influenza [None]
  - Arthralgia [None]
  - Chills [None]
  - Back pain [None]
  - Back pain [None]
  - Pollakiuria [None]
  - Cough [None]
  - Chest pain [None]
  - Muscle spasms [None]
  - Diarrhoea [None]
  - Urinary tract infection [None]
  - Pain in extremity [None]
  - Muscular weakness [None]
  - Diabetes mellitus inadequate control [None]
